FAERS Safety Report 13102541 (Version 1)
Quarter: 2017Q1

REPORT INFORMATION
  Report Type: Report from Study
  Country: US (occurrence: US)
  Receive Date: 20170110
  Receipt Date: 20170110
  Transmission Date: 20170428
  Serious: Yes (Other)
  Sender: FDA-Public Use
  Company Number: US-BAXALTA-2017BLT000134

PATIENT
  Age: 35 Year
  Sex: Female

DRUGS (1)
  1. GAMMAGARD LIQUID [Suspect]
     Active Substance: HUMAN IMMUNOGLOBULIN G
     Indication: IMMUNODEFICIENCY COMMON VARIABLE
     Dosage: 30 G, EVERY 3 WK
     Route: 042
     Dates: start: 2011

REACTIONS (6)
  - Respiratory tract infection [Recovered/Resolved]
  - Exposure during pregnancy [Recovered/Resolved]
  - Haemorrhage in pregnancy [Recovered/Resolved]
  - Premature labour [Recovered/Resolved]
  - Maternal exposure before pregnancy [Recovered/Resolved]
  - Breast feeding [Recovered/Resolved]

NARRATIVE: CASE EVENT DATE: 2011
